FAERS Safety Report 5056598-6 (Version None)
Quarter: 2006Q2

REPORT INFORMATION
  Report Type: 
  Country: None (occurrence: None)
  Receive Date: 20060616
  Receipt Date: 20060328
  Transmission Date: 20061013
  Serious: No
  Sender: FDA-Public Use
  Company Number: 2006US000713

PATIENT
  Sex: Female

DRUGS (1)
  1. VESICARE [Suspect]
     Dates: start: 20060301

REACTIONS (1)
  - PSYCHOTIC DISORDER [None]
